FAERS Safety Report 6259663-0 (Version None)
Quarter: 2009Q3

REPORT INFORMATION
  Report Type: 
  Country: None (occurrence: None)
  Receive Date: 20090706
  Receipt Date: 20090706
  Transmission Date: 20100115
  Serious: Yes (Other)
  Sender: FDA-Public Use
  Company Number: None

PATIENT
  Age: 80 Year
  Sex: Female
  Weight: 54.8852 kg

DRUGS (1)
  1. LISINOPRIL [Suspect]
     Indication: HYPERTENSION
     Dosage: 10MG 1 BID PO
     Route: 048
     Dates: start: 20080608, end: 20090629

REACTIONS (3)
  - BURNING SENSATION [None]
  - PRODUCT SUBSTITUTION ISSUE [None]
  - REFUSAL OF TREATMENT BY PATIENT [None]
